FAERS Safety Report 21719973 (Version 1)
Quarter: 2022Q4

REPORT INFORMATION
  Report Type: Report from Study
  Country: US (occurrence: US)
  Receive Date: 20221213
  Receipt Date: 20221213
  Transmission Date: 20230112
  Serious: No
  Sender: FDA-Public Use
  Company Number: US-ABBVIE-4187442

PATIENT
  Sex: Female

DRUGS (9)
  1. RINVOQ [Suspect]
     Active Substance: UPADACITINIB
     Indication: Rheumatoid arthritis
     Dosage: DAILY
     Route: 048
  2. VITAMIN D3 25 MCG CAPSULE [Concomitant]
     Indication: Product used for unknown indication
     Route: 048
  3. HYDROXYCHLOROQUINE SULFATE [Concomitant]
     Active Substance: HYDROXYCHLOROQUINE SULFATE
     Indication: Product used for unknown indication
  4. EUTHYROX 100 MCG TABLET [Concomitant]
     Indication: Product used for unknown indication
     Route: 048
  5. CYCLOSPORINE 0.05 % DROPERETTE [Concomitant]
     Indication: Product used for unknown indication
  6. OMEGA-3 FISH OIL 1000 MG CAPSULE [Concomitant]
     Indication: Product used for unknown indication
     Route: 048
  7. ASHWAGANDHA 500 MG CAPSULE [Concomitant]
     Indication: Product used for unknown indication
     Route: 048
  8. NEURIVA PLUS BRAIN PERFORMANCE [Concomitant]
     Indication: Product used for unknown indication
  9. KLOR-CON 10 10 MEQ TABLET SA [Concomitant]
     Indication: Product used for unknown indication
     Route: 048

REACTIONS (1)
  - Pain in extremity [Recovered/Resolved]
